FAERS Safety Report 15121879 (Version 1)
Quarter: 2018Q2

REPORT INFORMATION
  Report Type: Spontaneous
  Country: US (occurrence: US)
  Receive Date: 20180613
  Receipt Date: 20180613
  Transmission Date: 20180711
  Serious: No
  Sender: FDA-Public Use
  Company Number: None

PATIENT
  Age: 58 Year
  Sex: Female

DRUGS (2)
  1. XELJANZ [Suspect]
     Active Substance: TOFACITINIB CITRATE
     Indication: MAJOR DEPRESSION
  2. XELJANZ [Suspect]
     Active Substance: TOFACITINIB CITRATE
     Indication: GASTROOESOPHAGEAL REFLUX DISEASE
     Route: 048
     Dates: start: 20170508

REACTIONS (1)
  - Malignant melanoma [None]

NARRATIVE: CASE EVENT DATE: 20180612
